FAERS Safety Report 6676547-4 (Version None)
Quarter: 2010Q1

REPORT INFORMATION
  Report Type: 
  Country: None (occurrence: None)
  Receive Date: 20100331
  Receipt Date: 20081202
  Transmission Date: 20100710
  Serious: Yes (Other)
  Sender: FDA-Public Use
  Company Number: 2008152299

PATIENT
  Age: 75 Year
  Sex: Male

DRUGS (4)
  1. SUTENT [Suspect]
     Indication: THYROID CANCER
     Dosage: 50 MG  ORAL
     Route: 048
     Dates: start: 20080924, end: 20081022
  2. NORVASC [Suspect]
     Indication: HYPERTENSION
     Dosage: 10 MG , ORAL
     Route: 048
  3. ALL OTHER THERAPEUTIC PRODUCTS [Concomitant]
  4. SYNTHROID (LEVOTHYOXINE SODIUM) [Concomitant]

REACTIONS (3)
  - OEDEMA [None]
  - PALMAR-PLANTAR ERYTHRODYSAESTHESIA SYNDROME [None]
  - SKIN LESION [None]
